FAERS Safety Report 14579061 (Version 4)
Quarter: 2018Q3

REPORT INFORMATION
  Report Type: Report from Study
  Country: FR (occurrence: FR)
  Receive Date: 20180227
  Receipt Date: 20180912
  Transmission Date: 20181010
  Serious: Yes (Hospitalization, Other)
  Sender: FDA-Public Use
  Company Number: FR-EISAI MEDICAL RESEARCH-EC-2018-036493

PATIENT
  Age: 78 Year
  Sex: Male
  Weight: 68 kg

DRUGS (7)
  1. LENVATINIB [Suspect]
     Active Substance: LENVATINIB
     Indication: CLEAR CELL RENAL CELL CARCINOMA
     Route: 048
     Dates: start: 20180201, end: 20180202
  2. PEMBROLIZUMAB. [Suspect]
     Active Substance: PEMBROLIZUMAB
     Indication: CLEAR CELL RENAL CELL CARCINOMA
     Route: 041
     Dates: start: 20180201, end: 20180201
  3. SOLIFENACIN [Concomitant]
     Active Substance: SOLIFENACIN
  4. ESOMEPRAZOLE [Concomitant]
     Active Substance: ESOMEPRAZOLE
  5. PREDNISOLONE. [Concomitant]
     Active Substance: PREDNISOLONE
  6. ZALERG [Concomitant]
     Active Substance: KETOTIFEN FUMARATE
  7. LERCANIDIPINE [Concomitant]
     Active Substance: LERCANIDIPINE

REACTIONS (1)
  - Noninfective encephalitis [Recovered/Resolved]

NARRATIVE: CASE EVENT DATE: 20180219
